APPROVED DRUG PRODUCT: JAYPIRCA
Active Ingredient: PIRTOBRUTINIB
Strength: 50MG
Dosage Form/Route: TABLET;ORAL
Application: N216059 | Product #001
Applicant: LOXO ONCOLOGY INC
Approved: Jan 27, 2023 | RLD: Yes | RS: No | Type: RX

PATENTS:
Patent 10918622 | Expires: Dec 16, 2036
Patent 10695323 | Expires: Dec 16, 2036
Patent 10464905 | Expires: Dec 16, 2036
Patent 12220401 | Expires: Dec 16, 2036
Patent 10464905 | Expires: Dec 16, 2036
Patent 10918622 | Expires: Dec 16, 2036
Patent 10695323 | Expires: Dec 16, 2036
Patent 12220401 | Expires: Dec 16, 2036
Patent 10342780 | Expires: Dec 16, 2036
Patent 12109193 | Expires: Sep 14, 2041
Patent 12268666 | Expires: Jul 29, 2039

EXCLUSIVITY:
Code: I-981 | Date: Dec 2, 2028
Code: NCE | Date: Jan 27, 2028
Code: ODE-424 | Date: Jan 27, 2030
Code: ODE-451 | Date: Dec 1, 2030